FAERS Safety Report 15869427 (Version 1)
Quarter: 2019Q1

REPORT INFORMATION
  Report Type: Spontaneous
  Country: US (occurrence: US)
  Receive Date: 20190125
  Receipt Date: 20190125
  Transmission Date: 20190417
  Serious: Yes (Hospitalization, Other)
  Sender: FDA-Public Use
  Company Number: US-NAPPMUNDI-USA-2019-0145755

PATIENT
  Age: 14 Year
  Sex: Female

DRUGS (1)
  1. OXYCONTIN [Suspect]
     Active Substance: OXYCODONE HYDROCHLORIDE
     Indication: PRODUCT USED FOR UNKNOWN INDICATION
     Route: 048

REACTIONS (6)
  - Drug abuse [Unknown]
  - Hepatitis C [Unknown]
  - Victim of sexual abuse [Unknown]
  - Physical abuse [Unknown]
  - Psychiatric evaluation [Unknown]
  - Drug dependence [Unknown]
